FAERS Safety Report 9170727 (Version 2)
Quarter: 2013Q1

REPORT INFORMATION
  Report Type: Spontaneous
  Country: DE (occurrence: None)
  Receive Date: 20130312
  Receipt Date: 20130328
  Transmission Date: 20140127
  Serious: Yes (Hospitalization)
  Sender: FDA-Public Use
  Company Number: SYM-2013-01490

PATIENT
  Age: 25 Year
  Sex: Female

DRUGS (2)
  1. ELONTRIL [Suspect]
     Indication: PRODUCT USED FOR UNKNOWN INDICATION
     Route: 048
     Dates: start: 20130304, end: 20130304
  2. AMPHETAMINE [Suspect]
     Indication: PRODUCT USED FOR UNKNOWN INDICATION
     Dosage: UNKNOWN
     Dates: start: 20130304, end: 20130304

REACTIONS (7)
  - Convulsion [None]
  - Overdose [None]
  - Mental retardation [None]
  - Tachycardia [None]
  - Extrapyramidal disorder [None]
  - Hallucination [None]
  - Drug abuse [None]
